FAERS Safety Report 14375818 (Version 2)
Quarter: 2018Q1

REPORT INFORMATION
  Report Type: Other
  Country: AU (occurrence: AU)
  Receive Date: 20180111
  Receipt Date: 20180111
  Transmission Date: 20180509
  Serious: Yes (Life-Threatening, Hospitalization)
  Sender: FDA-Public Use
  Company Number: AU-MERZ NORTH AMERICA, INC.-18MRZ-00024

PATIENT
  Age: 60 Year
  Sex: Female

DRUGS (3)
  1. FISH OIL SUPPLEMENTS [Concomitant]
     Active Substance: FISH OIL
  2. OMEPRAZOLE. [Concomitant]
     Active Substance: OMEPRAZOLE
  3. XEOMIN [Suspect]
     Active Substance: INCOBOTULINUMTOXINA
     Indication: SPASMODIC DYSPHONIA
     Dosage: 3.75 MU
     Route: 030

REACTIONS (2)
  - Pharyngeal haematoma [Recovered/Resolved]
  - Off label use [Recovered/Resolved]
